FAERS Safety Report 12603568 (Version 1)
Quarter: 2016Q3

REPORT INFORMATION
  Report Type: Spontaneous
  Country: US (occurrence: US)
  Receive Date: 20160728
  Receipt Date: 20160728
  Transmission Date: 20161109
  Serious: Yes (Other)
  Sender: FDA-Public Use
  Company Number: US-ELI_LILLY_AND_COMPANY-US201607010480

PATIENT
  Sex: Female

DRUGS (3)
  1. LEVEMIR [Concomitant]
     Active Substance: INSULIN DETEMIR
  2. HUMALOG [Suspect]
     Active Substance: INSULIN LISPRO
     Dosage: 3 TIMES DAILY, SLIDING SCALE
     Route: 065
  3. HUMALOG [Suspect]
     Active Substance: INSULIN LISPRO
     Indication: TYPE 1 DIABETES MELLITUS
     Dosage: 3 TIMES DAILY, SLIDING SCALE
     Route: 065
     Dates: start: 2013

REACTIONS (7)
  - Blood glucose increased [Unknown]
  - Confusional state [Unknown]
  - Disorientation [Unknown]
  - Incorrect dose administered [Unknown]
  - Road traffic accident [Unknown]
  - Wrong technique in product usage process [Unknown]
  - Blood glucose decreased [Unknown]
